FAERS Safety Report 7716205-8 (Version None)
Quarter: 2011Q3

REPORT INFORMATION
  Report Type: 
  Country: None (occurrence: None)
  Receive Date: 20110829
  Receipt Date: 20110813
  Transmission Date: 20111222
  Serious: Yes (Hospitalization, Other)
  Sender: FDA-Public Use
  Company Number: PHHY2011PL74015

PATIENT

DRUGS (3)
  1. CALCITONIN SALMON [Suspect]
     Dosage: 4 MG/KG EVERY 8 HOUR
     Route: 064
  2. CEFUROXIME [Concomitant]
     Indication: ASYMPTOMATIC BACTERIURIA
     Dosage: 750 MG, EVERY 8 HOUR
  3. SODIUM CHLORIDE [Concomitant]
     Dosage: UNK UKN, UNK

REACTIONS (3)
  - HYPERPARATHYROIDISM [None]
  - HYPERCALCAEMIA [None]
  - MATERNAL DRUGS AFFECTING FOETUS [None]
